FAERS Safety Report 26136817 (Version 1)
Quarter: 2025Q4

REPORT INFORMATION
  Report Type: Spontaneous
  Country: EU (occurrence: EU)
  Receive Date: 20251209
  Receipt Date: 20251209
  Transmission Date: 20260118
  Serious: Yes (Disabling)
  Sender: MYLAN
  Company Number: None

PATIENT
  Age: 59 Year
  Sex: Male
  Weight: 75 kg

DRUGS (4)
  1. LIPITOR [Suspect]
     Active Substance: ATORVASTATIN CALCIUM
     Indication: Coronary artery disease
     Dosage: 40 MILLIGRAM, QD, 1 TABLET ONCE DAILY
     Dates: start: 20160901, end: 20251030
  2. LIPITOR [Suspect]
     Active Substance: ATORVASTATIN CALCIUM
     Dosage: 40 MILLIGRAM, QD, 1 TABLET ONCE DAILY
     Route: 065
     Dates: start: 20160901, end: 20251030
  3. LIPITOR [Suspect]
     Active Substance: ATORVASTATIN CALCIUM
     Dosage: 40 MILLIGRAM, QD, 1 TABLET ONCE DAILY
     Route: 065
     Dates: start: 20160901, end: 20251030
  4. LIPITOR [Suspect]
     Active Substance: ATORVASTATIN CALCIUM
     Dosage: 40 MILLIGRAM, QD, 1 TABLET ONCE DAILY
     Dates: start: 20160901, end: 20251030

REACTIONS (9)
  - Chromaturia [Recovered/Resolved]
  - Foot deformity [Not Recovered/Not Resolved]
  - Increased tendency to bruise [Unknown]
  - Muscle strength abnormal [Unknown]
  - Arthralgia [Recovered/Resolved with Sequelae]
  - Hypoaesthesia [Recovered/Resolved with Sequelae]
  - Muscle spasms [Recovered/Resolved with Sequelae]
  - Joint swelling [Recovered/Resolved with Sequelae]
  - Pain in extremity [Recovered/Resolved with Sequelae]

NARRATIVE: CASE EVENT DATE: 20180101
